FAERS Safety Report 9988092 (Version 4)
Quarter: 2014Q2

REPORT INFORMATION
  Report Type: Report from Study
  Country: US (occurrence: US)
  Receive Date: 20140308
  Receipt Date: 20140530
  Transmission Date: 20141212
  Serious: Yes (Hospitalization)
  Sender: FDA-Public Use
  Company Number: US-ABBVIE-14P-163-1203888-00

PATIENT
  Age: 61 Year
  Sex: Female
  Weight: 96.7 kg

DRUGS (2)
  1. HUMIRA [Suspect]
     Indication: RHEUMATOID ARTHRITIS
     Route: 058
     Dates: start: 201307, end: 201401
  2. PREDNISONE [Concomitant]
     Indication: RHEUMATOID ARTHRITIS
     Dosage: 5-10-20 MG/DAY

REACTIONS (4)
  - Blister [Unknown]
  - Osteomyelitis [Unknown]
  - Drug dose omission [Unknown]
  - Expired product administered [Unknown]
